FAERS Safety Report 8224224-0 (Version None)
Quarter: 2012Q1

REPORT INFORMATION
  Report Type: 
  Country: None (occurrence: None)
  Receive Date: 20120319
  Receipt Date: 20120302
  Transmission Date: 20120608
  Serious: Yes (Hospitalization, Other)
  Sender: FDA-Public Use
  Company Number: 2012P1008752

PATIENT
  Age: 45 Year
  Sex: Male
  Weight: 99.7913 kg

DRUGS (13)
  1. RANEXA [Concomitant]
  2. ALPRAZOLAM [Concomitant]
  3. ASPIRIN [Concomitant]
  4. ISOSORBIDE DINITRATE [Concomitant]
  5. PRILOSEC [Concomitant]
  6. XANAX [Concomitant]
  7. OXYCODONE HCL [Concomitant]
  8. ATLANTIS [Concomitant]
  9. METOPROLOL SUCCINATE [Concomitant]
  10. NOVOLOG [Concomitant]
  11. NEURONTIN [Concomitant]
  12. FENTANYL [Suspect]
     Indication: BACK PAIN
     Dates: start: 20120125, end: 20120302
  13. LISINOPRIL [Concomitant]

REACTIONS (3)
  - CORONARY ARTERY OCCLUSION [None]
  - ANGINA PECTORIS [None]
  - STENT MALFUNCTION [None]
